FAERS Safety Report 23678845 (Version 1)
Quarter: 2024Q1

REPORT INFORMATION
  Report Type: Spontaneous
  Country: US (occurrence: None)
  Receive Date: 20240326
  Receipt Date: 20240326
  Transmission Date: 20240410
  Serious: No
  Sender: FDA-Public Use
  Company Number: None

PATIENT
  Age: 77 Year
  Sex: Female
  Weight: 83.91 kg

DRUGS (4)
  1. BRIMONIDINE [Suspect]
     Active Substance: BRIMONIDINE TARTRATE
  2. BRIMONIDINE [Concomitant]
  3. DORZOLAMIDE [Concomitant]
  4. LATANOPROST [Concomitant]

REACTIONS (6)
  - Vision blurred [None]
  - Dizziness [None]
  - Pruritus [None]
  - Palpitations [None]
  - Hair growth abnormal [None]
  - Headache [None]
